FAERS Safety Report 8217505-8 (Version None)
Quarter: 2012Q1

REPORT INFORMATION
  Report Type: 
  Country: None (occurrence: None)
  Receive Date: 20120305
  Receipt Date: 20111101
  Transmission Date: 20120608
  Serious: Yes (Other)
  Sender: FDA-Public Use
  Company Number: 1000024687

PATIENT
  Age: 61 Year
  Sex: Male

DRUGS (14)
  1. WELLBUTRIN SR (BUPROPION) (BUPROPION) [Concomitant]
  2. DUONEB (COMBIVENT) (COMBIVENT) [Concomitant]
  3. THEOPHYLLINE CR (THEOPHYLLINE) (THEOPHYLLINE) [Concomitant]
  4. ASPIRIN [Concomitant]
  5. ZOCOR [Concomitant]
  6. FORADIL (FORMOTEROL FUMARATE) (FORMOTEROL FUMARATE) [Concomitant]
  7. COMBIVENT (COMBIVENT) (COMBIVENT) [Concomitant]
  8. NITROSTAT (GLYCERYL TRINITRATE) (GLYCERYL TRINITRATE) [Concomitant]
  9. TYLENOL (ACETAMINOPHEN) (ACETAMINOPHEN) [Concomitant]
  10. PULMICORT (BUDESONIDE) (BUDESONIDE) [Concomitant]
  11. PLAVIX (CLOPIDOGREL BISULFATE) (CLOPIDOGREL BISULFATE) [Concomitant]
  12. DALIRESP [Suspect]
     Indication: CHRONIC OBSTRUCTIVE PULMONARY DISEASE
     Dosage: 500 MCG (500 MCG, 1 IN 1 D), ORAL
     Route: 048
     Dates: start: 20110701, end: 20111011
  13. ATROVENT (IPRATROPIUM BROMIDE) (IPRATROPIUM BROMIDE) [Concomitant]
  14. MULTIVITAMIN (MULTIVITAMIN) (MULTIVITAMIN) [Concomitant]

REACTIONS (2)
  - DEPRESSED MOOD [None]
  - SUICIDAL IDEATION [None]
